FAERS Safety Report 7483951-3 (Version None)
Quarter: 2011Q2

REPORT INFORMATION
  Report Type: 
  Country: None (occurrence: None)
  Receive Date: 20110517
  Receipt Date: 20110511
  Transmission Date: 20111010
  Serious: Yes (Other)
  Sender: FDA-Public Use
  Company Number: US-PFIZER INC-2011101498

PATIENT
  Sex: Female

DRUGS (3)
  1. CORTEF [Concomitant]
     Dosage: 7.5MG MORNING AND 5MG EVENING
  2. GENOTROPIN [Suspect]
     Indication: GROWTH HORMONE DEFICIENCY
     Dosage: 2 MG, 1X/DAY
     Dates: start: 20080101
  3. LEVOTHYROXINE [Concomitant]
     Dosage: 100 UG, 1X/DAY

REACTIONS (1)
  - RHEUMATOID ARTHRITIS [None]
